FAERS Safety Report 10510353 (Version 3)
Quarter: 2015Q2

REPORT INFORMATION
  Report Type: Report from Study
  Country: CA (occurrence: CA)
  Receive Date: 20141010
  Receipt Date: 20150612
  Transmission Date: 20150821
  Serious: Yes (Death, Hospitalization)
  Sender: FDA-Public Use
  Company Number: CA-ROCHE-1472554

PATIENT
  Age: 80 Year
  Sex: Female

DRUGS (15)
  1. ASA [Concomitant]
     Active Substance: ASPIRIN
     Indication: ISCHAEMIC HEART DISEASE PROPHYLAXIS
     Route: 065
     Dates: start: 20141021
  2. DIAMICRON [Concomitant]
     Active Substance: GLICLAZIDE
     Indication: DIABETES MELLITUS
     Route: 065
     Dates: start: 1980
  3. NITRO-SPRAY [Concomitant]
     Active Substance: ISOSORBIDE DINITRATE
     Indication: MYOCARDIAL INFARCTION
     Route: 065
     Dates: start: 20140925
  4. LEVEMIR [Concomitant]
     Active Substance: INSULIN DETEMIR
     Route: 065
     Dates: start: 201503
  5. LINAGLIPTIN [Concomitant]
     Active Substance: LINAGLIPTIN
     Route: 065
     Dates: start: 201503
  6. ROSUVASTATIN [Concomitant]
     Active Substance: ROSUVASTATIN
     Indication: BLOOD CHOLESTEROL
     Route: 065
     Dates: start: 1980
  7. METOLAZONE. [Concomitant]
     Active Substance: METOLAZONE
     Route: 065
     Dates: start: 201503
  8. RANIBIZUMAB [Suspect]
     Active Substance: RANIBIZUMAB
     Route: 050
     Dates: start: 20150219, end: 20150219
  9. ATACAND [Concomitant]
     Active Substance: CANDESARTAN CILEXETIL
     Indication: HYPERTENSION
     Route: 065
     Dates: start: 1980
  10. RANIBIZUMAB [Suspect]
     Active Substance: RANIBIZUMAB
     Indication: NEOVASCULAR AGE-RELATED MACULAR DEGENERATION
     Route: 050
     Dates: start: 20100713
  11. RANIBIZUMAB [Suspect]
     Active Substance: RANIBIZUMAB
     Route: 050
     Dates: start: 20141113
  12. RANIBIZUMAB [Suspect]
     Active Substance: RANIBIZUMAB
     Route: 050
     Dates: start: 20141006
  13. BISOPROLOL [Concomitant]
     Active Substance: BISOPROLOL
     Indication: HYPERTENSION
     Route: 065
     Dates: start: 20141103
  14. FUROSEMIDE. [Concomitant]
     Active Substance: FUROSEMIDE
     Route: 065
     Dates: start: 201503
  15. RANIBIZUMAB [Suspect]
     Active Substance: RANIBIZUMAB
     Route: 050
     Dates: start: 20140703, end: 20140703

REACTIONS (6)
  - Death [Fatal]
  - Angina pectoris [Unknown]
  - Pleural effusion [Unknown]
  - Thrombolysis [Recovered/Resolved]
  - Pain [Unknown]
  - Viral infection [Unknown]

NARRATIVE: CASE EVENT DATE: 20140925
